FAERS Safety Report 6165130-5 (Version None)
Quarter: 2009Q2

REPORT INFORMATION
  Report Type: 
  Country: None (occurrence: None)
  Receive Date: 20090421
  Receipt Date: 20090421
  Transmission Date: 20091009
  Serious: Yes (Life-Threatening, Hospitalization)
  Sender: FDA-Public Use
  Company Number: None

PATIENT
  Age: 10 Year
  Sex: Male
  Weight: 47 kg

DRUGS (7)
  1. CEFDINIR [Suspect]
     Indication: OROPHARYNGEAL PAIN
     Dosage: 600MG 1 PO Q DAY X 10 PO
     Route: 048
     Dates: start: 20090414, end: 20090415
  2. CEFDINIR [Suspect]
     Indication: PYREXIA
     Dosage: 600MG 1 PO Q DAY X 10 PO
     Route: 048
     Dates: start: 20090414, end: 20090415
  3. CEFTRIAXONE [Suspect]
     Indication: PHARYNGITIS STREPTOCOCCAL
     Dosage: ? POSSIBLE 1.5 GM IN LIDOCAINE 1 DOSE IM
     Route: 030
     Dates: start: 20090416, end: 20090416
  4. CEFTRIAXONE [Suspect]
     Indication: PYREXIA
     Dosage: ? POSSIBLE 1.5 GM IN LIDOCAINE 1 DOSE IM
     Route: 030
     Dates: start: 20090416, end: 20090416
  5. ZITHROMAX [Concomitant]
  6. CONCERTA [Concomitant]
  7. ZOLOFT [Concomitant]

REACTIONS (10)
  - ABDOMINAL PAIN UPPER [None]
  - BREATH SOUNDS ABNORMAL [None]
  - COUGH [None]
  - DIARRHOEA [None]
  - DYSPNOEA [None]
  - ERYTHEMA [None]
  - INDURATION [None]
  - URTICARIA [None]
  - VOMITING [None]
  - WHEEZING [None]
